FAERS Safety Report 24968266 (Version 1)
Quarter: 2025Q1

REPORT INFORMATION
  Report Type: Report from Study
  Country: CA (occurrence: CA)
  Receive Date: 20250214
  Receipt Date: 20250214
  Transmission Date: 20250409
  Serious: Yes (Hospitalization, Other)
  Sender: TAKEDA
  Company Number: CA-TAKEDA-2025TUS014823

PATIENT
  Sex: Male

DRUGS (4)
  1. VEDOLIZUMAB [Suspect]
     Active Substance: VEDOLIZUMAB
     Indication: Colitis ulcerative
  2. Salofalk [Concomitant]
     Dosage: UNK UNK, QD
  3. MESALAMINE [Concomitant]
     Active Substance: MESALAMINE
  4. EPIVAL [Concomitant]
     Active Substance: DIVALPROEX SODIUM

REACTIONS (2)
  - Syncope [Recovering/Resolving]
  - Infusion site discomfort [Recovering/Resolving]
